FAERS Safety Report 4279747-6 (Version None)
Quarter: 2004Q1

REPORT INFORMATION
  Report Type: 
  Country: None (occurrence: None)
  Receive Date: 20040127
  Receipt Date: 20040122
  Transmission Date: 20041129
  Serious: Yes (Other)
  Sender: FDA-Public Use
  Company Number: WAES 0401USA01542

PATIENT
  Age: 43 Year
  Sex: Male

DRUGS (7)
  1. CEFTAZIDIME [Concomitant]
     Dates: start: 20000101, end: 20000101
  2. PRIMAXIN [Suspect]
     Indication: PNEUMONIA
     Route: 042
     Dates: start: 20000101, end: 20000101
  3. DOPAMINE HYDROCHLORIDE [Concomitant]
     Dates: start: 19991226
  4. FLUCONAZOLE [Concomitant]
     Dates: start: 20000101
  5. PIPERACILLIN [Concomitant]
     Dates: start: 19991201, end: 20000101
  6. TOBRAMYCIN [Concomitant]
     Dates: start: 20000101, end: 20000101
  7. VANCOMYCIN [Concomitant]
     Dates: start: 20000101, end: 20000101

REACTIONS (1)
  - PNEUMONIA ASPERGILLUS [None]
